FAERS Safety Report 10747547 (Version 1)
Quarter: 2015Q1

REPORT INFORMATION
  Report Type: Spontaneous
  Country: US (occurrence: US)
  Receive Date: 20150129
  Receipt Date: 20150129
  Transmission Date: 20150721
  Serious: No
  Sender: FDA-Public Use
  Company Number: US-BIOGENIDEC-2014BI133144

PATIENT
  Age: 62 Year
  Sex: Female

DRUGS (7)
  1. PRIMROSE OIL [Concomitant]
  2. PAMELOR [Concomitant]
     Active Substance: NORTRIPTYLINE HYDROCHLORIDE
  3. REQUIP [Concomitant]
     Active Substance: ROPINIROLE HYDROCHLORIDE
  4. VITAMIN D [Concomitant]
     Active Substance: CHOLECALCIFEROL
  5. TECFIDERA [Suspect]
     Active Substance: DIMETHYL FUMARATE
     Indication: PRODUCT USED FOR UNKNOWN INDICATION
     Route: 048
     Dates: start: 20141207
  6. AMPYRA [Concomitant]
     Active Substance: DALFAMPRIDINE
     Dates: start: 20131121
  7. LYSINE [Concomitant]
     Active Substance: LYSINE

REACTIONS (2)
  - Amnesia [Unknown]
  - Flushing [Unknown]

NARRATIVE: CASE EVENT DATE: 20141207
